FAERS Safety Report 23841939 (Version 1)
Quarter: 2024Q2

REPORT INFORMATION
  Report Type: Spontaneous
  Country: US (occurrence: US)
  Receive Date: 20240510
  Receipt Date: 20240510
  Transmission Date: 20240716
  Serious: Yes (Other)
  Sender: FDA-Public Use
  Company Number: US-ORGANON-O2405USA000752

PATIENT
  Sex: Female

DRUGS (2)
  1. NEXPLANON [Suspect]
     Active Substance: ETONOGESTREL
     Dosage: 1 IMPLANT (68 MG,LEFT ARM), FOR 3 YEARS
     Route: 059
     Dates: start: 202312
  2. NEXPLANON [Concomitant]
     Active Substance: ETONOGESTREL
     Dosage: UNK
     Route: 059
     Dates: end: 202312

REACTIONS (3)
  - Pregnancy with implant contraceptive [Not Recovered/Not Resolved]
  - Unintended pregnancy [Not Recovered/Not Resolved]
  - Complication associated with device [Not Recovered/Not Resolved]

NARRATIVE: CASE EVENT DATE: 20240106
